FAERS Safety Report 11758482 (Version 1)
Quarter: 2015Q4

REPORT INFORMATION
  Report Type: Report from Study
  Country: US (occurrence: US)
  Receive Date: 20151120
  Receipt Date: 20151120
  Transmission Date: 20160304
  Serious: Yes (Other)
  Sender: FDA-Public Use
  Company Number: US-GILEAD-2015-0182089

PATIENT
  Age: 30 Year
  Sex: Female
  Weight: 66.2 kg

DRUGS (5)
  1. INFLUENZA VACCINE [Concomitant]
     Active Substance: INFLUENZA VIRUS VACCINE
     Indication: PROPHYLAXIS
     Dosage: UNK
     Dates: start: 20151027
  2. VIREAD [Suspect]
     Active Substance: TENOFOVIR DISOPROXIL FUMARATE
     Indication: PRODUCT USED FOR UNKNOWN INDICATION
     Dosage: 1 DF, QD
     Route: 050
     Dates: start: 20150924
  3. CALCIUM FOLINATE W/FLUOROURACIL/OXALIPLATIN [Concomitant]
     Indication: BLOOD CALCIUM
     Dosage: UNK
     Dates: start: 20150522
  4. IRON [Concomitant]
     Active Substance: IRON
     Indication: BLOOD IRON
     Dosage: UNK
     Dates: start: 20150325
  5. EMTRICITABINE/TENOFOVIR DISOPROXIL FUMARATE [Suspect]
     Active Substance: EMTRICITABINE\TENOFOVIR DISOPROXIL
     Indication: UNEVALUABLE EVENT
     Dosage: 1 DF, QD
     Route: 065
     Dates: start: 20150612

REACTIONS (3)
  - Maternal exposure during pregnancy [Recovered/Resolved]
  - Abortion spontaneous [Recovered/Resolved]
  - Exposure via body fluid [Recovered/Resolved]

NARRATIVE: CASE EVENT DATE: 20151103
